FAERS Safety Report 4511516-1 (Version None)
Quarter: 2004Q4

REPORT INFORMATION
  Report Type: 
  Country: None (occurrence: None)
  Receive Date: 20041129
  Receipt Date: 20040908
  Transmission Date: 20050328
  Serious: No
  Sender: FDA-Public Use
  Company Number: US-BRISTOL-MYERS SQUIBB COMPANY-12696415

PATIENT
  Age: 60 Year
  Sex: Male
  Weight: 85 kg

DRUGS (2)
  1. ABILIFY [Suspect]
     Indication: HALLUCINATION
     Route: 048
  2. SEROQUEL [Concomitant]
     Dates: start: 19800101

REACTIONS (1)
  - INSOMNIA [None]
